FAERS Safety Report 14931783 (Version 1)
Quarter: 2018Q2

REPORT INFORMATION
  Report Type: Report from Study
  Country: US (occurrence: US)
  Receive Date: 20180524
  Receipt Date: 20180524
  Transmission Date: 20180711
  Serious: No
  Sender: FDA-Public Use
  Company Number: US-ACADIA PHARMACEUTICALS INC.-ACA-2018-007350

PATIENT
  Sex: Male
  Weight: 77.98 kg

DRUGS (1)
  1. NUPLAZID [Suspect]
     Active Substance: PIMAVANSERIN TARTRATE
     Indication: PRODUCT USED FOR UNKNOWN INDICATION
     Dosage: UNK
     Route: 065
     Dates: end: 201801

REACTIONS (6)
  - Aggression [Unknown]
  - Agitation [Unknown]
  - Tremor [Unknown]
  - Restlessness [Unknown]
  - Hallucination [Unknown]
  - Anger [Unknown]
